FAERS Safety Report 24642579 (Version 1)
Quarter: 2024Q4

REPORT INFORMATION
  Report Type: Spontaneous
  Country: US (occurrence: None)
  Receive Date: 20241119
  Receipt Date: 20241119
  Transmission Date: 20250115
  Serious: Yes (Congenital Anomaly)
  Sender: Public
  Company Number: None

PATIENT
  Age: 32 Year
  Sex: Female

DRUGS (1)
  1. STELARA [Suspect]
     Active Substance: USTEKINUMAB
     Indication: Crohn^s disease
     Dosage: OTHER FREQUENCY : EVERY 6 WEEKS;?
     Route: 058
     Dates: start: 20170101

REACTIONS (3)
  - Exposure during pregnancy [None]
  - Maternal drugs affecting foetus [None]
  - Grey matter heterotopia [None]

NARRATIVE: CASE EVENT DATE: 20200921
